FAERS Safety Report 8009158 (Version 4)
Quarter: 2014Q2

REPORT INFORMATION
  Report Type: Report from Study
  Country: US (occurrence: US)
  Receive Date: 20110624
  Receipt Date: 20140618
  Transmission Date: 20141212
  Serious: Yes (Other)
  Sender: FDA-Public Use
  Company Number: PHHY2011US26478

PATIENT
  Age: 62 Year
  Sex: Female
  Weight: 104.31 kg

DRUGS (33)
  1. TASIGNA [Suspect]
     Indication: CHRONIC MYELOID LEUKAEMIA
     Dosage: 2 TABS IN AM, 2 TABS IN PM
     Route: 048
     Dates: start: 20110126
  2. CLONAZEPAM SANDOZ [Suspect]
     Dosage: 1 DF, TID
     Route: 048
  3. LYRICA [Suspect]
     Dosage: 3 DF, BID
     Route: 048
  4. OXYCONTIN [Suspect]
     Indication: GROIN PAIN
     Dosage: 1 DF, Q12H
     Route: 048
  5. AMBIEN [Suspect]
     Dosage: 1 DF, QHS PRN SLEEP
     Route: 048
  6. OXYCODONE HYDROCHLORIDE [Suspect]
     Indication: PAIN
     Dosage: 1 MG, Q3-4H PRN
     Route: 048
  7. CARISOPRODOL [Concomitant]
     Dosage: 350 MG TABLET QHS
     Route: 048
  8. CARVEDILOL [Concomitant]
     Dosage: 12.5 MG TABLET, 2X DAILY BEFORE MEALS AND AT HS
     Route: 048
  9. CYANOCOBALAMIN [Concomitant]
     Dosage: 1000 UG, QMO
     Route: 030
  10. CYCLOBENZAPRINE HYDROCHLORIDE [Concomitant]
     Dosage: 10 MG TABLET, TID
     Route: 048
  11. DEPO-ESTRADIOL CYPIONATE [Concomitant]
     Dosage: 5 MG AS DIRECTED
     Route: 042
  12. DEPO-MEDROL [Concomitant]
     Dosage: 1 MG, QMO AS DIRECTED
     Route: 030
  13. DEPO-TESTOSTERONE [Concomitant]
     Dosage: 200 MG
     Route: 030
  14. EFFEXOR-XR [Concomitant]
     Dosage: 75 MG SUSTAINED RELEASE 24 HR
     Route: 048
  15. GUAIFENESIN [Concomitant]
     Dosage: 3 DF, QD
     Route: 048
  16. MAGIC MOUTHWASH [Concomitant]
     Indication: PAIN
     Dosage: 10 ML, QID PRN
     Route: 048
  17. METOCLOPRAMIDE HYDROCHLORIDE [Concomitant]
     Dosage: 1 DF, TID
     Route: 048
  18. PANTOPRAZOLE SODIUM [Concomitant]
     Dosage: 1 DF, QD
     Route: 048
  19. PROVIGIL [Concomitant]
     Dosage: 0.01 DF, BID
     Route: 048
  20. MILNACIPRAN HYDROCHLORIDE [Concomitant]
     Dosage: 1 DF, QD
     Route: 048
  21. TEMAZEPAM [Concomitant]
     Dosage: 1 DF, QHS
     Route: 048
  22. VENLAFAXINE HYDROCHLORIDE [Concomitant]
     Dosage: 1 DF BID, ONE AT 1AM AND ONE AT 2 PM
     Route: 048
  23. ZYDONE [Concomitant]
     Dosage: 7.5-400 MG, 1 PO Q6H PRN PAIN
     Route: 048
  24. ECOTRIN [Concomitant]
  25. MULTI-VIT [Concomitant]
  26. DONEPEZIL HCL [Concomitant]
     Dosage: 1 DF, QD
     Route: 048
  27. LAZANDA [Concomitant]
     Dosage: 1 DF, AS DIRECTED
     Route: 055
  28. LIDODERM [Concomitant]
     Dosage: 1 DF, AS DIRECTED
     Route: 062
  29. MACROBID [Concomitant]
     Dosage: 1 DF, BID
     Route: 048
  30. MECLIZINE HCL [Concomitant]
     Dosage: 1 DF, BID
     Route: 048
     Dates: start: 20140210
  31. PHENYLEPHRINE HCL [Concomitant]
     Dosage: 1 DF, QD
     Route: 048
  32. NAPROXEN [Concomitant]
     Dosage: 1 DF, BID PRN
     Route: 048
  33. VITAMIN D2 [Concomitant]
     Dosage: 1 DF, QD
     Route: 048

REACTIONS (6)
  - Depression [Unknown]
  - Crying [Unknown]
  - Limb injury [Unknown]
  - Injury [Recovered/Resolved]
  - Fall [Recovered/Resolved]
  - Pain [Not Recovered/Not Resolved]
